FAERS Safety Report 18277353 (Version 1)
Quarter: 2020Q3

REPORT INFORMATION
  Report Type: Report from Study
  Country: US (occurrence: US)
  Receive Date: 20200917
  Receipt Date: 20200917
  Transmission Date: 20201103
  Serious: Yes (Hospitalization, Other)
  Sender: FDA-Public Use
  Company Number: US-JNJFOC-A-US2020-204701

PATIENT
  Age: 27 Year
  Sex: Female
  Weight: 85.26 kg

DRUGS (5)
  1. OPSUMIT [Concomitant]
     Active Substance: MACITENTAN
     Indication: PULMONARY ARTERIAL HYPERTENSION
     Route: 048
  2. VELETRI [Suspect]
     Active Substance: EPOPROSTENOL
     Indication: PULMONARY ARTERIAL HYPERTENSION
     Dosage: 25 NG/KG, PER MIN,
     Route: 042
  3. VELETRI [Suspect]
     Active Substance: EPOPROSTENOL
     Dosage: 21 NG/KG, PER MIN
     Route: 042
     Dates: start: 20200420
  4. VELETRI [Suspect]
     Active Substance: EPOPROSTENOL
     Dosage: 33 NG/KG, PER MIN
     Route: 042
  5. VELETRI [Suspect]
     Active Substance: EPOPROSTENOL
     Dosage: INTRAVENOUS CONTINUOUS,  45 NG/KG/MIN
     Route: 042

REACTIONS (24)
  - Headache [Not Recovered/Not Resolved]
  - Skin irritation [Unknown]
  - Dermatitis contact [Recovering/Resolving]
  - Central venous catheter removal [Unknown]
  - Dyspnoea exertional [Unknown]
  - Rash [Unknown]
  - Abdominal pain upper [Unknown]
  - Diarrhoea [Unknown]
  - Catheter placement [Unknown]
  - Flushing [Unknown]
  - Blister [Unknown]
  - Catheter site rash [Recovering/Resolving]
  - Therapy non-responder [Not Recovered/Not Resolved]
  - Palpitations [Recovered/Resolved]
  - Blood pressure decreased [Unknown]
  - Injection site vesicles [Recovering/Resolving]
  - Device dislocation [Unknown]
  - Catheter site haemorrhage [Unknown]
  - Injection site pain [Unknown]
  - Pruritus [Unknown]
  - Erythema [Unknown]
  - Injection site erythema [Unknown]
  - Nausea [Not Recovered/Not Resolved]
  - Pain in jaw [Unknown]

NARRATIVE: CASE EVENT DATE: 202005
